FAERS Safety Report 13930725 (Version 11)
Quarter: 2018Q2

REPORT INFORMATION
  Report Type: Spontaneous
  Country: US (occurrence: US)
  Receive Date: 20170901
  Receipt Date: 20180621
  Transmission Date: 20180711
  Serious: Yes (Hospitalization)
  Sender: FDA-Public Use
  Company Number: US-ACTELION-A-NJ2017-158886

PATIENT
  Age: 48 Year
  Sex: Female
  Weight: 68.27 kg

DRUGS (6)
  1. VELETRI [Suspect]
     Active Substance: EPOPROSTENOL
     Indication: PULMONARY ARTERIAL HYPERTENSION
     Dosage: 34 NG/KG, PER MIN
     Route: 042
  2. AMLODIPINE [Concomitant]
     Active Substance: AMLODIPINE BESYLATE
  3. ADEMPAS [Concomitant]
     Active Substance: RIOCIGUAT
  4. LETAIRIS [Concomitant]
     Active Substance: AMBRISENTAN
  5. VELETRI [Suspect]
     Active Substance: EPOPROSTENOL
     Dosage: 30 NG/KG, PER MIN
     Route: 042
  6. VELETRI [Suspect]
     Active Substance: EPOPROSTENOL
     Dosage: 28 NG/KG, PER MIN
     Route: 042

REACTIONS (18)
  - Oxygen therapy [Unknown]
  - Arthralgia [Not Recovered/Not Resolved]
  - Pain [Unknown]
  - Catheter management [Unknown]
  - Dizziness [Unknown]
  - Nasopharyngitis [Unknown]
  - Dyspnoea [Not Recovered/Not Resolved]
  - Device occlusion [Unknown]
  - Fatigue [Unknown]
  - Catheterisation cardiac abnormal [Unknown]
  - Drug dose omission [Unknown]
  - Device alarm issue [Unknown]
  - Pain in jaw [Unknown]
  - Diarrhoea [Not Recovered/Not Resolved]
  - Headache [Unknown]
  - Malaise [Unknown]
  - Hypotension [Unknown]
  - Palpitations [Unknown]

NARRATIVE: CASE EVENT DATE: 20170828
